FAERS Safety Report 5769923-5 (Version None)
Quarter: 2008Q2

REPORT INFORMATION
  Report Type: 
  Country: None (occurrence: None)
  Receive Date: 20080613
  Receipt Date: 20080505
  Transmission Date: 20081010
  Serious: Yes (Other)
  Sender: FDA-Public Use
  Company Number: US-ABBOTT-08P-163-0447265-00

PATIENT
  Sex: Female
  Weight: 74.002 kg

DRUGS (5)
  1. HUMIRA [Suspect]
     Indication: RHEUMATOID ARTHRITIS
     Route: 058
     Dates: end: 20070501
  2. HUMIRA [Suspect]
     Route: 058
     Dates: start: 20070801
  3. HUMIRA [Suspect]
     Indication: RHEUMATOID ARTHRITIS
     Route: 058
     Dates: start: 20031001
  4. LEFLUNOMIDE [Concomitant]
     Indication: RHEUMATOID ARTHRITIS
     Route: 048
     Dates: start: 20040101, end: 20070501
  5. LEFLUNOMIDE [Concomitant]
     Route: 048
     Dates: start: 20070801

REACTIONS (2)
  - ALOPECIA [None]
  - BREAST CANCER [None]
